FAERS Safety Report 5917573-X (Version None)
Quarter: 2008Q4

REPORT INFORMATION
  Report Type: 
  Country: None (occurrence: None)
  Receive Date: 20081014
  Receipt Date: 20081003
  Transmission Date: 20090506
  Serious: Yes (Other)
  Sender: FDA-Public Use
  Company Number: US-WYE-H06255008

PATIENT
  Age: 3 Year
  Sex: Female

DRUGS (4)
  1. IBUPROFEN TABLETS [Suspect]
     Indication: DRUG USE FOR UNKNOWN INDICATION
     Dosage: UNKNOWN
     Route: 048
  2. DEXTROMETHORPHAN HYDROBROMIDE/GUAIFENESIN [Suspect]
     Indication: NASOPHARYNGITIS
     Dosage: UNKNOWN
     Route: 048
  3. DEXTROMETHORPHAN HYDROBROMIDE/GUAIFENESIN [Suspect]
     Indication: OCULAR HYPERAEMIA
  4. DEXTROMETHORPHAN HYDROBROMIDE/GUAIFENESIN [Suspect]
     Indication: SWELLING

REACTIONS (3)
  - BRONCHIAL HYPERREACTIVITY [None]
  - HYPERSENSITIVITY [None]
  - PNEUMONIA [None]
